FAERS Safety Report 9887982 (Version 1)
Quarter: 2014Q1

REPORT INFORMATION
  Report Type: Spontaneous
  Country: US (occurrence: None)
  Receive Date: 20140207
  Receipt Date: 20140207
  Transmission Date: 20141002
  Serious: Yes (Hospitalization)
  Sender: FDA-Public Use
  Company Number: None

PATIENT
  Age: 48 Year
  Sex: Male
  Weight: 111.9 kg

DRUGS (1)
  1. LINEZOLID [Suspect]
     Route: 048
     Dates: start: 20130613, end: 20130615

REACTIONS (3)
  - Nausea [None]
  - Vomiting [None]
  - Chills [None]
